FAERS Safety Report 4883675-2 (Version None)
Quarter: 2006Q1

REPORT INFORMATION
  Report Type: 
  Country: None (occurrence: None)
  Receive Date: 20060117
  Receipt Date: 20060117
  Transmission Date: 20060701
  Serious: Yes (Hospitalization)
  Sender: FDA-Public Use
  Company Number: None

PATIENT
  Age: 72 Year
  Sex: Female

DRUGS (1)
  1. SPIRONOLACTONE [Suspect]
     Dosage: DAILY  PO
     Route: 048
     Dates: start: 20051012, end: 20051015

REACTIONS (5)
  - ANAPHYLACTIC REACTION [None]
  - DYSPNOEA [None]
  - OEDEMA PERIPHERAL [None]
  - SWOLLEN TONGUE [None]
  - URTICARIA [None]
